FAERS Safety Report 17958094 (Version 1)
Quarter: 2020Q2

REPORT INFORMATION
  Report Type: Report from Study
  Country: KR (occurrence: KR)
  Receive Date: 20200629
  Receipt Date: 20200629
  Transmission Date: 20200714
  Serious: Yes (Death)
  Sender: FDA-Public Use
  Company Number: KR-MYLANLABS-2020M1059483

PATIENT
  Age: 3 Year
  Sex: Male

DRUGS (6)
  1. ETOPOSIDE. [Suspect]
     Active Substance: ETOPOSIDE
     Indication: BONE MARROW CONDITIONING REGIMEN
     Dosage: 800 MG/M2, QDAS TRANSPLANT CONDITIONI..
     Route: 065
  2. CYCLOPHOSPHAMIDE. [Suspect]
     Active Substance: CYCLOPHOSPHAMIDE
     Indication: HAEMATOPOIETIC STEM CELL MOBILISATION
     Dosage: 1000MG/M2, QDON DAYS 0, 1, AND 2 FOR PERIPHERAL..
     Route: 065
  3. CYCLOPHOSPHAMIDE. [Suspect]
     Active Substance: CYCLOPHOSPHAMIDE
     Indication: BONE MARROW CONDITIONING REGIMEN
     Dosage: 1500MG/M2, QD1500 MG/M2, QDAS TRANSPLANT CONDITIONING REGIMEN..
     Route: 065
  4. CARMUSTINE. [Suspect]
     Active Substance: CARMUSTINE
     Indication: BONE MARROW CONDITIONING REGIMEN
     Dosage: 150 MILLIGRAM/SQ. METER, QD, ON DAYS -8, -7 AND -6
     Route: 065
  5. ETOPOSIDE. [Suspect]
     Active Substance: ETOPOSIDE
     Indication: HAEMATOPOIETIC STEM CELL MOBILISATION
     Dosage: 150 MG/M2, QDON DAYS 0, 1, AND 2 FOR PE...
     Route: 065
  6. METHYLPREDNISOLONE. [Concomitant]
     Active Substance: METHYLPREDNISOLONE
     Indication: PROPHYLAXIS
     Dosage: 1 MILLIGRAM/KILOGRAM, QDON DAYS -9 TO -2,...
     Route: 065

REACTIONS (1)
  - Respiratory failure [Fatal]
